FAERS Safety Report 10950012 (Version 1)
Quarter: 2015Q1

REPORT INFORMATION
  Report Type: Spontaneous
  Country: US (occurrence: None)
  Receive Date: 20150226
  Receipt Date: 20150226
  Transmission Date: 20150721
  Serious: Yes (Hospitalization)
  Sender: FDA-Public Use
  Company Number: TPA2011A04357

PATIENT
  Age: 84 Year
  Sex: Female

DRUGS (11)
  1. GENERIC STOOL SOFTNER (DOCUSATE SODIUM) [Concomitant]
  2. COZAAR (LOSARTAN POTASSIUM) [Concomitant]
  3. PRADAXA [Suspect]
     Active Substance: DABIGATRAN ETEXILATE MESYLATE
     Indication: ATRIAL FIBRILLATION
     Route: 048
     Dates: start: 201102
  4. FLOVENT [Concomitant]
     Active Substance: FLUTICASONE PROPIONATE
  5. SYNTHROID [Concomitant]
     Active Substance: LEVOTHYROXINE SODIUM
  6. COMBIVENT (SALBUTAMOL, IPRATROPIUM BROMIDE) [Concomitant]
  7. ZOCOR [Concomitant]
     Active Substance: SIMVASTATIN
  8. PREVACID [Suspect]
     Active Substance: LANSOPRAZOLE
     Route: 048
  9. SINGULAIR [Concomitant]
     Active Substance: MONTELUKAST SODIUM
  10. LASIX [Concomitant]
     Active Substance: FUROSEMIDE
  11. TENORMIN [Concomitant]
     Active Substance: ATENOLOL

REACTIONS (2)
  - Haemoglobin decreased [None]
  - Blood iron decreased [None]

NARRATIVE: CASE EVENT DATE: 201106
